FAERS Safety Report 7491270-4 (Version None)
Quarter: 2011Q2

REPORT INFORMATION
  Report Type: 
  Country: None (occurrence: None)
  Receive Date: 20110519
  Receipt Date: 20110510
  Transmission Date: 20111010
  Serious: Yes (Hospitalization)
  Sender: FDA-Public Use
  Company Number: A0927765A

PATIENT
  Age: 59 Year
  Sex: Female

DRUGS (5)
  1. ALBUTEROL [Concomitant]
  2. ADVAIR DISKUS 100/50 [Suspect]
     Indication: CHRONIC OBSTRUCTIVE PULMONARY DISEASE
     Dosage: 1PUFF PER DAY
     Route: 055
     Dates: end: 20060601
  3. ZOLOFT [Concomitant]
  4. RHINOCORT [Concomitant]
  5. ZOLOFT [Concomitant]

REACTIONS (4)
  - PSEUDOMONAL BACTERAEMIA [None]
  - PNEUMONITIS [None]
  - CHRONIC OBSTRUCTIVE PULMONARY DISEASE [None]
  - PNEUMONIA [None]
